FAERS Safety Report 13956998 (Version 1)
Quarter: 2017Q3

REPORT INFORMATION
  Report Type: Spontaneous
  Country: US (occurrence: US)
  Receive Date: 20170911
  Receipt Date: 20170911
  Transmission Date: 20171128
  Serious: Yes (Other)
  Sender: FDA-Public Use
  Company Number: US-PFIZER INC-2017387132

PATIENT
  Age: 73 Year
  Sex: Male
  Weight: 103.42 kg

DRUGS (14)
  1. LYRICA [Suspect]
     Active Substance: PREGABALIN
     Indication: HYPOAESTHESIA
  2. DIGOXEN [Concomitant]
     Active Substance: DIGOXIN
     Indication: CARDIAC DISORDER
     Dosage: 0.125 MG, ALTERNATE DAY(0.125MG PILL EVERY OTHER DAY BY MOUTH)
     Route: 048
  3. PROBENECID. [Concomitant]
     Active Substance: PROBENECID
     Indication: GOUT
     Dosage: 500 MG, 2X/DAY(500MG PILL TWICE A DAY)
     Route: 048
  4. REMODULIN [Concomitant]
     Active Substance: TREPROSTINIL
     Indication: PULMONARY ARTERIAL HYPERTENSION
     Dosage: 10MG/ML SUBCUTANEOUS 0.03ML/HR
     Route: 058
  5. LISINOPRIL. [Concomitant]
     Active Substance: LISINOPRIL
     Indication: CARDIAC DISORDER
     Dosage: 5 MG, 1X/DAY (5MG PILL ONCE A DAY)
     Route: 048
  6. TRAMADOL. [Concomitant]
     Active Substance: TRAMADOL
     Indication: MUSCULOSKELETAL PAIN
     Dosage: 50 MG, 2X/DAY (50MG PILL  TWICE A DAY)
     Route: 048
  7. PANTOPRAZOLE [Concomitant]
     Active Substance: PANTOPRAZOLE
     Indication: HYPERCHLORHYDRIA
     Dosage: 40 MG, 1X/DAY(40MG PILL ONCE A DAY BY MOUTH)
     Route: 048
  8. LYRICA [Suspect]
     Active Substance: PREGABALIN
     Indication: PAIN IN EXTREMITY
     Dosage: 50 MG, 2X/DAY
     Route: 048
     Dates: start: 20170824, end: 20170902
  9. OXYGEN. [Concomitant]
     Active Substance: OXYGEN
     Indication: PULMONARY ARTERIAL HYPERTENSION
     Dosage: 9 L, UNK
     Route: 045
  10. EPLERENONE. [Concomitant]
     Active Substance: EPLERENONE
     Indication: CARDIAC DISORDER
     Dosage: 25 MG, 1X/DAY (25MG PILL ONCE A DAY)
     Route: 048
  11. METOPROLOL SUCCINATE. [Concomitant]
     Active Substance: METOPROLOL SUCCINATE
     Indication: CARDIAC DISORDER
     Dosage: 25 MG, 2X/DAY (25MG PILL TWICE A DAY)
     Route: 048
  12. BUMETANIDE. [Concomitant]
     Active Substance: BUMETANIDE
     Indication: DIURETIC THERAPY
     Dosage: 1 MG, 2X/DAY (1MG PILL  TWICE A DAY)
     Route: 048
  13. XARELTO [Concomitant]
     Active Substance: RIVAROXABAN
     Indication: BLOOD DISORDER
     Dosage: 15 MG, 1X/DAY
     Route: 048
  14. LIPITOR [Concomitant]
     Active Substance: ATORVASTATIN CALCIUM
     Indication: BLOOD CHOLESTEROL ABNORMAL
     Dosage: 20 MG, 1X/DAY(20MG PILL ONCE A DAY)
     Route: 048

REACTIONS (5)
  - Drug ineffective [Unknown]
  - Blister [Not Recovered/Not Resolved]
  - Lymph node pain [Not Recovered/Not Resolved]
  - Rash [Not Recovered/Not Resolved]
  - Lymphadenopathy [Not Recovered/Not Resolved]

NARRATIVE: CASE EVENT DATE: 20170901
